FAERS Safety Report 5247455-0 (Version None)
Quarter: 2007Q1

REPORT INFORMATION
  Report Type: 
  Country: None (occurrence: None)
  Receive Date: 20070227
  Receipt Date: 20070216
  Transmission Date: 20070707
  Serious: Yes (Hospitalization)
  Sender: FDA-Public Use
  Company Number: US-BRISTOL-MYERS SQUIBB COMPANY-13683396

PATIENT
  Age: 53 Year
  Sex: Female

DRUGS (15)
  1. CETUXIMAB [Suspect]
     Indication: TONSIL CANCER
     Route: 042
     Dates: start: 20070207
  2. CISPLATIN [Suspect]
     Dates: start: 20060101
  3. TAMBOCOR [Concomitant]
     Dates: start: 19910101
  4. XANAX [Concomitant]
     Dates: start: 19910101
  5. GEODON [Concomitant]
     Dates: start: 20060101
  6. EFFEXOR XR [Concomitant]
     Dates: start: 20050101
  7. LOTREL [Concomitant]
     Dosage: DOSAGE FORM = 5/20 TABLET
     Dates: start: 20060101
  8. REGLAN [Concomitant]
     Dates: start: 20070101
  9. HALDOL [Concomitant]
     Dates: start: 20070101
  10. EMEND [Concomitant]
     Dates: start: 20060101
  11. ROXANOL [Concomitant]
     Dates: start: 20070101
  12. PHENERGAN [Concomitant]
  13. VICODIN [Concomitant]
  14. COMPAZINE [Concomitant]
  15. TAXOTERE [Concomitant]

REACTIONS (2)
  - DEEP VEIN THROMBOSIS [None]
  - RADIATION SKIN INJURY [None]
